FAERS Safety Report 8495144 (Version 3)
Quarter: 2013Q2

REPORT INFORMATION
  Report Type: Report from Study
  Country: US (occurrence: US)
  Receive Date: 20120405
  Receipt Date: 20130619
  Transmission Date: 20140414
  Serious: Yes (Other)
  Sender: FDA-Public Use
  Company Number: US-JNJFOC-20120313904

PATIENT
  Sex: Female

DRUGS (2)
  1. TOPAMAX [Suspect]
     Indication: HEADACHE
     Route: 065
     Dates: start: 2005, end: 2009
  2. TOPIRAMATE [Suspect]
     Indication: HEADACHE
     Route: 065
     Dates: end: 2009

REACTIONS (5)
  - Abortion spontaneous [Not Recovered/Not Resolved]
  - Exposure during pregnancy [Recovered/Resolved]
  - Pain [Unknown]
  - Fatigue [Unknown]
  - Neuralgia [Unknown]
